FAERS Safety Report 10065481 (Version 5)
Quarter: 2015Q3

REPORT INFORMATION
  Report Type: Spontaneous
  Country: US (occurrence: US)
  Receive Date: 20140408
  Receipt Date: 20150804
  Transmission Date: 20151125
  Serious: Yes (Death, Life-Threatening, Other)
  Sender: FDA-Public Use
  Company Number: US-MERCK-1404USA004128

PATIENT
  Sex: Male
  Weight: 81.63 kg

DRUGS (3)
  1. BYETTA [Suspect]
     Active Substance: EXENATIDE
     Dosage: 10 MICROGRAM, BID
     Route: 048
     Dates: start: 20100301, end: 20101224
  2. JANUVIA [Suspect]
     Active Substance: SITAGLIPTIN PHOSPHATE
     Indication: TYPE 2 DIABETES MELLITUS
     Dosage: 100 MG, QD
     Route: 048
     Dates: start: 20110824, end: 20110923
  3. BYETTA [Suspect]
     Active Substance: EXENATIDE
     Dosage: 5 MICROGRAM QD
     Route: 048
     Dates: start: 20060110, end: 20080203

REACTIONS (40)
  - Ileostomy [Unknown]
  - Metastases to lung [Unknown]
  - Pancreatitis [Unknown]
  - Colitis ulcerative [Unknown]
  - Dysuria [Unknown]
  - Computerised tomogram thorax abnormal [Unknown]
  - Emphysema [Unknown]
  - Adenocarcinoma [Unknown]
  - Depression [Unknown]
  - Pleurodesis [Unknown]
  - Surgery [Unknown]
  - Nephrolithiasis [Unknown]
  - Pancreatic mass [Unknown]
  - Pancreatic duct obstruction [Unknown]
  - Pancreatic cyst [Unknown]
  - Splenic vein occlusion [Unknown]
  - Pulmonary mass [Unknown]
  - Splenomegaly [Unknown]
  - Spinal fusion surgery [Unknown]
  - Nephrolithiasis [Unknown]
  - Pancreatic duct dilatation [Unknown]
  - Gastric varices [Unknown]
  - Biliary dilatation [Unknown]
  - Pancreatic neoplasm [Unknown]
  - Pleural effusion [Unknown]
  - Proctocolectomy [Unknown]
  - Bile duct obstruction [Unknown]
  - Iron deficiency anaemia [Unknown]
  - Knee operation [Unknown]
  - Renal cyst [Unknown]
  - Chronic obstructive pulmonary disease [Not Recovered/Not Resolved]
  - Fistula [Unknown]
  - Pleural effusion [Unknown]
  - Arteriosclerosis coronary artery [Unknown]
  - Pleural effusion [Unknown]
  - Pneumothorax [Unknown]
  - Rotator cuff syndrome [Unknown]
  - Adenocarcinoma pancreas [Fatal]
  - Atelectasis [Unknown]
  - Renal cyst [Unknown]

NARRATIVE: CASE EVENT DATE: 201206
